FAERS Safety Report 16255427 (Version 1)
Quarter: 2019Q2

REPORT INFORMATION
  Report Type: Spontaneous
  Country: FR (occurrence: FR)
  Receive Date: 20190430
  Receipt Date: 20190430
  Transmission Date: 20190711
  Serious: Yes (Hospitalization)
  Sender: FDA-Public Use
  Company Number: FR-MYLANLABS-2019M1039556

PATIENT
  Age: 31 Year
  Sex: Male

DRUGS (4)
  1. TERCIAN                            /00759301/ [Suspect]
     Active Substance: CYAMEMAZINE
     Indication: PSYCHOTIC DISORDER
     Dosage: 600 MILLIGRAM, QD
     Route: 048
     Dates: start: 201710
  2. XEPLION [Suspect]
     Active Substance: PALIPERIDONE PALMITATE
     Indication: PSYCHOTIC DISORDER
     Dosage: 100 MILLIGRAM
     Route: 030
     Dates: start: 201712
  3. BUPRENORPHINE. [Suspect]
     Active Substance: BUPRENORPHINE
     Indication: PRODUCT USED FOR UNKNOWN INDICATION
     Dosage: 1.2 MILLIGRAM, QD
     Route: 048
     Dates: start: 2016
  4. LOXAPAC                            /00401801/ [Suspect]
     Active Substance: LOXAPINE
     Indication: PSYCHOTIC DISORDER
     Dosage: 150 MILLIGRAM, QD
     Route: 030
     Dates: start: 201710

REACTIONS (3)
  - Constipation [Not Recovered/Not Resolved]
  - Product substitution [Unknown]
  - Intestinal obstruction [Not Recovered/Not Resolved]

NARRATIVE: CASE EVENT DATE: 201806
